FAERS Safety Report 7090662-5 (Version None)
Quarter: 2010Q4

REPORT INFORMATION
  Report Type: 
  Country: None (occurrence: None)
  Receive Date: 20101109
  Receipt Date: 20090507
  Transmission Date: 20110411
  Serious: No
  Sender: FDA-Public Use
  Company Number: US-KINGPHARMUSA00001-K200900562

PATIENT
  Sex: Female
  Weight: 68.027 kg

DRUGS (6)
  1. FLECTOR [Suspect]
     Indication: PAIN IN EXTREMITY
     Dosage: 1 PATCH, PRN
     Route: 061
     Dates: start: 20090504, end: 20090507
  2. CLIMARA [Concomitant]
     Indication: BLOOD OESTROGEN
     Dosage: 1 PATCH, QW
     Route: 061
  3. BECONASE [Concomitant]
     Dosage: UNK
     Route: 061
  4. BENADRYL [Concomitant]
     Indication: HYPERSENSITIVITY
     Dosage: 350 MG, QD
     Route: 048
  5. MOTRIN [Concomitant]
     Indication: BACK PAIN
     Dosage: 1600-2400 MG, QD
  6. MOTRIN [Concomitant]
     Indication: PAIN IN EXTREMITY

REACTIONS (2)
  - DRUG INEFFECTIVE [None]
  - PAIN [None]
